FAERS Safety Report 5309633-1 (Version None)
Quarter: 2007Q2

REPORT INFORMATION
  Report Type: 
  Country: None (occurrence: None)
  Receive Date: 20070427
  Receipt Date: 20060616
  Transmission Date: 20071010
  Serious: No
  Sender: FDA-Public Use
  Company Number: US-GLAXOSMITHKLINE-A0609506A

PATIENT
  Age: 11 Year
  Sex: Male

DRUGS (4)
  1. DEXEDRINE [Suspect]
     Indication: ATTENTION DEFICIT/HYPERACTIVITY DISORDER
     Dosage: 5MG PER DAY
     Route: 048
     Dates: start: 20060425, end: 20060401
  2. DEPAKOTE ER [Concomitant]
  3. WELLBUTRIN XL [Concomitant]
  4. TRAZODONE HCL [Concomitant]

REACTIONS (3)
  - DISTURBANCE IN ATTENTION [None]
  - DRUG INEFFECTIVE [None]
  - PSYCHOMOTOR HYPERACTIVITY [None]
